FAERS Safety Report 19603634 (Version 1)
Quarter: 2021Q3

REPORT INFORMATION
  Report Type: Spontaneous
  Country: DE (occurrence: DE)
  Receive Date: 20210724
  Receipt Date: 20210724
  Transmission Date: 20211014
  Serious: Yes (Hospitalization)
  Sender: FDA-Public Use
  Company Number: DE-ACCORD-232706

PATIENT
  Age: 95 Year
  Sex: Male

DRUGS (16)
  1. METOCLOPRAMIDE. [Concomitant]
     Active Substance: METOCLOPRAMIDE
     Dosage: 10 MG, IF NECESSARY, TABLET
     Route: 048
  2. MELPERONE [Concomitant]
     Active Substance: MELPERONE
     Dosage: 25 MG, IF NECESSARY, TABLET
     Route: 048
  3. METOPROLOL. [Suspect]
     Active Substance: METOPROLOL
     Indication: PRODUCT USED FOR UNKNOWN INDICATION
     Dosage: 47.5 MG, MIX?UP, TABLET
     Route: 048
  4. SPIRONOLACTONE. [Concomitant]
     Active Substance: SPIRONOLACTONE
     Dosage: 50 MG, 0.5?0?0?0, TABLET
     Route: 048
  5. SULFAMETHOXAZOLE/TRIMETHOPRIM [Concomitant]
     Active Substance: SULFAMETHOXAZOLE\TRIMETHOPRIM
     Dosage: 960 MG, 1?0?1?0, TABLET
     Route: 048
  6. METAMIZOLE SODIUM [Concomitant]
     Active Substance: METAMIZOLE SODIUM
     Dosage: 20 GTT, UP TO 60 GTT DAILY, DROPS
     Route: 048
  7. ACETYLSALICYLIC ACID [Concomitant]
     Active Substance: ASPIRIN
     Dosage: 100 MG, 0?1?0?0, TABLET
     Route: 048
  8. MELPERONE [Concomitant]
     Active Substance: MELPERONE
     Dosage: 25 MG, 0?0?1?0, TABLET
     Route: 048
  9. RAMIPRIL. [Suspect]
     Active Substance: RAMIPRIL
     Indication: PRODUCT USED FOR UNKNOWN INDICATION
     Dosage: 5 MG, MIX?UP, TABLET
     Route: 048
  10. TORASEMIDE [Concomitant]
     Active Substance: TORSEMIDE
     Dosage: 10 MG, 1?0?0?0, TABLET
     Route: 048
  11. SACCHAROMYCES BOULARDII [Concomitant]
     Active Substance: SACCHAROMYCES CEREVISIAE
     Dosage: 50 MG, IF NECESSARY, TABLET
     Route: 048
  12. MEMANTINE HYDROCHLORIDE. [Concomitant]
     Active Substance: MEMANTINE HYDROCHLORIDE
     Dosage: 10 MG, 1?0?0?0, TABLET
     Route: 048
  13. NITRENDIPINE [Suspect]
     Active Substance: NITRENDIPINE
     Indication: PRODUCT USED FOR UNKNOWN INDICATION
     Dosage: 20 MG, MIX?UP, TABLET
     Route: 048
  14. ATORVASTATIN [Concomitant]
     Active Substance: ATORVASTATIN
     Dosage: 10 MG, 0?0?1?0, TABLET
     Route: 048
  15. EMPAGLIFLOZIN [Concomitant]
     Active Substance: EMPAGLIFLOZIN
     Dosage: 10 MG, 1?0?0?0, TABLET
     Route: 048
  16. INDISCHE FLOHSAMEN [Concomitant]
     Active Substance: HERBALS\PLANTAGO OVATA SEED
     Dosage: IF NECESSARY, GRANULES
     Route: 048

REACTIONS (4)
  - Wrong product administered [Unknown]
  - Bradycardia [Unknown]
  - Hypotension [Unknown]
  - Medication error [Unknown]

NARRATIVE: CASE EVENT DATE: 20210412
